FAERS Safety Report 14203259 (Version 3)
Quarter: 2023Q1

REPORT INFORMATION
  Report Type: Spontaneous
  Country: GB (occurrence: GB)
  Receive Date: 20171120
  Receipt Date: 20230209
  Transmission Date: 20230418
  Serious: Yes (Other)
  Sender: FDA-Public Use
  Company Number: None

PATIENT

DRUGS (24)
  1. ONDANSETRON [Suspect]
     Active Substance: ONDANSETRON
     Indication: Product used for unknown indication
     Dosage: 8 MILLIGRAM, PRN
     Route: 065
  2. GEMCITABINE [Suspect]
     Active Substance: GEMCITABINE
     Indication: Desmoplastic small round cell tumour
     Dosage: UNK
     Route: 065
  3. IRINOTECAN [Suspect]
     Active Substance: IRINOTECAN
     Indication: Product used for unknown indication
     Dosage: UNK, 3 LINES OF CHEMOTHERAPY (OFF LABEL USE)
     Route: 065
  4. TOPOTECAN [Suspect]
     Active Substance: TOPOTECAN HYDROCHLORIDE
     Indication: Desmoplastic small round cell tumour
     Dosage: UNK, 3 LINES OF CHEMOTHERAPY
     Route: 065
  5. VINORELBINE [Suspect]
     Active Substance: VINORELBINE TARTRATE
     Indication: Desmoplastic small round cell tumour
     Dosage: 1 INTERNATIONAL UNIT, 1 IU, CYCLE 4 CYCLES, CYCLICAL ; CYCLICAL
     Route: 065
  6. CYCLOPHOSPHAMIDE [Suspect]
     Active Substance: CYCLOPHOSPHAMIDE
     Indication: Desmoplastic small round cell tumour
     Dosage: UNK, 3 LINES OF CHEMOTHERAPY (1G)
     Route: 065
  7. CYCLOPHOSPHAMIDE [Suspect]
     Active Substance: CYCLOPHOSPHAMIDE
     Dosage: UNK, 4 CYCLE MAINTENANCE THERAPY;CYCLICAL
     Route: 065
  8. DOCETAXEL [Suspect]
     Active Substance: DOCETAXEL
     Indication: Malignant neoplasm progression
     Dosage: UNK
     Route: 065
  9. TEMOZOLOMIDE [Suspect]
     Active Substance: TEMOZOLOMIDE
     Indication: Desmoplastic small round cell tumour
     Dosage: UNK, 3 LINES OF CHEMOTHERAPY
     Route: 065
  10. VINCRISTINE [Suspect]
     Active Substance: VINCRISTINE
     Indication: Malignant neoplasm progression
     Dosage: 1 INTERNATIONAL UNIT (1 INTERNATIONAL UNIT, CYCLE ; CYCLICAL )
     Route: 065
  11. VINCRISTINE [Suspect]
     Active Substance: VINCRISTINE
     Dosage: 1 INTERNATIONAL UNIT (1 IU, CYCLE, 4 CYCLES, CYCLICAL;CYCLICAL)
     Route: 065
  12. VINCRISTINE [Suspect]
     Active Substance: VINCRISTINE
     Dosage: 1 INTERNATIONAL UNIT (1 IU, CYCLE, 4 CYCLES, CYCLICAL;CYCLICAL)
     Route: 065
  13. CYCLIZINE [Suspect]
     Active Substance: CYCLIZINE
     Indication: Product used for unknown indication
     Dosage: 50 MILLIGRAM, PRN (AS REQUIRED)
     Route: 065
  14. MELATONIN [Suspect]
     Active Substance: MELATONIN
     Indication: Product used for unknown indication
     Dosage: 6 MILLIGRAM, QD
     Route: 065
  15. SULFAMETHOXAZOLE\TRIMETHOPRIM [Suspect]
     Active Substance: SULFAMETHOXAZOLE\TRIMETHOPRIM
     Indication: Product used for unknown indication
     Dosage: 480 MILLIGRAM, BID (PER DAY, SATURDAY AND SUNDAY)
     Route: 065
  16. DOXORUBICIN HYDROCHLORIDE [Suspect]
     Active Substance: DOXORUBICIN HYDROCHLORIDE
     Indication: Desmoplastic small round cell tumour
     Dosage: UNK
     Route: 065
  17. IFOSFAMIDE [Suspect]
     Active Substance: IFOSFAMIDE
     Indication: Desmoplastic small round cell tumour
     Dosage: UNK, 2MG
     Route: 065
  18. IFOSFAMIDE [Suspect]
     Active Substance: IFOSFAMIDE
     Dosage: 1 INTERNATIONAL UNIT, 1 IU, CYCLE,5 CYCLES;CYCLICAL
     Route: 065
  19. IFOSFAMIDE [Suspect]
     Active Substance: IFOSFAMIDE
     Dosage: 1 INTERNATIONAL UNIT, 1 IU, CYCLE,5 CYCLES;CYCLICAL
     Route: 065
  20. ONIVYDE [Suspect]
     Active Substance: IRINOTECAN HYDROCHLORIDE
     Indication: Malignant neoplasm progression
     Dosage: UNK, 3 LINES OF CHEMOTHERAPY (OFF LABEL USE)
     Route: 065
  21. DACTINOMYCIN [Suspect]
     Active Substance: DACTINOMYCIN
     Indication: Desmoplastic small round cell tumour
     Dosage: UNK, IVA 5 CYCLE; CYCLICAL
     Route: 065
  22. DACTINOMYCIN [Suspect]
     Active Substance: DACTINOMYCIN
     Dosage: UNK, IVA 5 CYCLE; CYCLICAL
     Route: 065
  23. PAZOPANIB [Concomitant]
     Active Substance: PAZOPANIB
     Indication: Product used for unknown indication
     Dosage: UNK
     Route: 065
  24. DOXORUBICIN [Concomitant]
     Active Substance: DOXORUBICIN
     Indication: Desmoplastic small round cell tumour
     Dosage: 1 INTERNATIONAL UNIT (1 IU, 4 CYCLES CYCLICAL;CYCLICAL)
     Route: 065

REACTIONS (7)
  - Malignant neoplasm progression [Unknown]
  - Desmoplastic small round cell tumour [Unknown]
  - Ascites [Recovering/Resolving]
  - Metastases to lymph nodes [Unknown]
  - Metastases to liver [Unknown]
  - Metastases to peritoneum [Unknown]
  - Disease progression [Unknown]

NARRATIVE: CASE EVENT DATE: 20170101
